FAERS Safety Report 8139138-4 (Version None)
Quarter: 2012Q1

REPORT INFORMATION
  Report Type: 
  Country: None (occurrence: None)
  Receive Date: 20120215
  Receipt Date: 20120210
  Transmission Date: 20120608
  Serious: Yes (Hospitalization, Disabling)
  Sender: FDA-Public Use
  Company Number: US-MERCK-1108USA02804

PATIENT
  Age: 57 Year
  Sex: Female
  Weight: 60 kg

DRUGS (15)
  1. FOSAMAX [Suspect]
     Indication: OSTEOPENIA
     Route: 048
     Dates: start: 19990701, end: 20010301
  2. FOSAMAX [Suspect]
     Route: 048
     Dates: start: 20010401, end: 20050101
  3. FOSAMAX [Suspect]
     Route: 048
     Dates: start: 20010401, end: 20050101
  4. FOSAMAX PLUS D [Suspect]
     Indication: OSTEOPENIA
     Route: 048
     Dates: start: 20080201, end: 20100301
  5. SYNTHROID [Concomitant]
     Indication: HYPOTHYROIDISM
     Route: 065
     Dates: start: 20010601, end: 20080601
  6. CITRACAL + D [Concomitant]
     Route: 065
     Dates: start: 20090601
  7. VITAMIN D (UNSPECIFIED) [Concomitant]
     Route: 065
     Dates: start: 19900101
  8. CALCIUM (UNSPECIFIED) [Concomitant]
     Route: 065
     Dates: start: 19900101
  9. FOSAMAX PLUS D [Suspect]
     Indication: OSTEOPOROSIS
     Route: 048
     Dates: start: 20080201, end: 20100301
  10. PREMPRO [Concomitant]
     Route: 065
     Dates: start: 19930101
  11. CHOLECALCIFEROL [Concomitant]
     Route: 065
     Dates: start: 20090201
  12. FOSAMAX [Suspect]
     Indication: OSTEOPOROSIS
     Route: 048
     Dates: start: 19990701, end: 20010301
  13. VITAMINS (UNSPECIFIED) [Concomitant]
     Route: 065
     Dates: start: 19900101
  14. LEXAPRO [Concomitant]
     Indication: DEPRESSION
     Route: 065
     Dates: start: 20040701, end: 20100601
  15. CALCIUM (UNSPECIFIED) AND VITAMIN D (UNSPECIFIED) [Concomitant]
     Route: 065
     Dates: start: 20000301

REACTIONS (45)
  - MENISCUS LESION [None]
  - RENAL IMPAIRMENT [None]
  - INTERVERTEBRAL DISC DEGENERATION [None]
  - FEMUR FRACTURE [None]
  - ANAEMIA POSTOPERATIVE [None]
  - ANXIETY [None]
  - AORTIC CALCIFICATION [None]
  - INFLAMMATION [None]
  - RASH [None]
  - CALCIUM DEFICIENCY [None]
  - SPONDYLOLYSIS [None]
  - WEIGHT INCREASED [None]
  - VITAMIN D DEFICIENCY [None]
  - SCIATICA [None]
  - OSTEOCHONDRITIS [None]
  - OSTEOARTHRITIS [None]
  - ARTERIAL DISORDER [None]
  - SPONDYLOLISTHESIS [None]
  - VASCULAR DISSECTION [None]
  - PAIN IN EXTREMITY [None]
  - NORMOCHROMIC NORMOCYTIC ANAEMIA [None]
  - COMPRESSION FRACTURE [None]
  - FALL [None]
  - INTERVERTEBRAL DISC PROTRUSION [None]
  - FOOT FRACTURE [None]
  - FOOT DEFORMITY [None]
  - SKELETAL INJURY [None]
  - VASCULAR PSEUDOANEURYSM [None]
  - HAEMATOMA [None]
  - TRAUMATIC HAEMATOMA [None]
  - TINNITUS [None]
  - MYOSITIS [None]
  - DEEP VEIN THROMBOSIS [None]
  - ADVERSE EVENT [None]
  - MUSCLE SPASMS [None]
  - AORTIC DISORDER [None]
  - SCOLIOSIS [None]
  - TENDON DISORDER [None]
  - SKIN DISCOLOURATION [None]
  - VULVA CYST [None]
  - LIMB ASYMMETRY [None]
  - BALANCE DISORDER [None]
  - BUNION [None]
  - LOW TURNOVER OSTEOPATHY [None]
  - NEURITIS [None]
